FAERS Safety Report 6248664-4 (Version None)
Quarter: 2009Q2

REPORT INFORMATION
  Report Type: 
  Country: None (occurrence: None)
  Receive Date: 20090624
  Receipt Date: 20090624
  Transmission Date: 20091009
  Serious: Yes (Life-Threatening)
  Sender: FDA-Public Use
  Company Number: None

PATIENT
  Age: 81 Year
  Sex: Male
  Weight: 80 kg

DRUGS (13)
  1. ENOXAPARIN SODIUM [Suspect]
     Indication: ATRIAL FIBRILLATION
     Dosage: 100MG Q12H SC
     Route: 058
     Dates: start: 20090504, end: 20090505
  2. ENOXAPARIN SODIUM [Suspect]
     Indication: MITRAL VALVE REPAIR
     Dosage: 100MG Q12H SC
     Route: 058
     Dates: start: 20090504, end: 20090505
  3. WARFARIN SODIUM [Suspect]
     Indication: ATRIAL FIBRILLATION
     Dosage: 7.5MG DAILY, 11.25MG TUES/THURS
     Dates: start: 20090430, end: 20090505
  4. WARFARIN SODIUM [Suspect]
     Indication: MITRAL VALVE REPAIR
     Dosage: 7.5MG DAILY, 11.25MG TUES/THURS
     Dates: start: 20090430, end: 20090505
  5. ACYCLOVIR [Concomitant]
  6. ONDANSETRON [Concomitant]
  7. PRAVASTATIN [Concomitant]
  8. MIRTAZAPINE [Concomitant]
  9. RANITIDINE [Concomitant]
  10. QUETIAPINE FUMARATE [Concomitant]
  11. ENALAPRIL [Concomitant]
  12. IBUPROFEN [Concomitant]
  13. PROCHLORPERAZINE [Concomitant]

REACTIONS (2)
  - HAEMOGLOBIN DECREASED [None]
  - SMALL INTESTINAL HAEMORRHAGE [None]
